FAERS Safety Report 8007836-9 (Version None)
Quarter: 2011Q4

REPORT INFORMATION
  Report Type: 
  Country: None (occurrence: None)
  Receive Date: 20111222
  Receipt Date: 20111222
  Transmission Date: 20120403
  Serious: Yes (Other)
  Sender: FDA-Public Use
  Company Number: None

PATIENT
  Sex: Male
  Weight: 86.1834 kg

DRUGS (1)
  1. PRADAXA [Suspect]

REACTIONS (3)
  - OVERDOSE [None]
  - ARTHRALGIA [None]
  - RENAL DISORDER [None]
